FAERS Safety Report 5535148-1 (Version None)
Quarter: 2007Q4

REPORT INFORMATION
  Report Type: 
  Country: None (occurrence: None)
  Receive Date: 20071205
  Receipt Date: 20071130
  Transmission Date: 20080405
  Serious: Yes (Other)
  Sender: FDA-Public Use
  Company Number: US-GILEAD-2007-0014491

PATIENT
  Sex: Female
  Weight: 48.124 kg

DRUGS (8)
  1. LETAIRIS [Suspect]
     Indication: PULMONARY HYPERTENSION
     Route: 048
     Dates: start: 20071110
  2. LETAIRIS [Suspect]
     Route: 048
     Dates: start: 20070910, end: 20071020
  3. VENTAVIS [Concomitant]
     Indication: PULMONARY HYPERTENSION
     Route: 055
  4. REVATIO [Concomitant]
     Indication: PULMONARY HYPERTENSION
     Route: 048
  5. TOPROL-XL [Concomitant]
     Indication: ESSENTIAL HYPERTENSION
     Route: 048
  6. POTASSIUM CHLORIDE [Concomitant]
     Indication: SUPPLEMENTATION THERAPY
     Route: 048
  7. LASIX [Concomitant]
     Indication: FLUID RETENTION
     Route: 048
  8. LORAZEPAM [Concomitant]
     Indication: ANXIETY DISORDER
     Route: 048

REACTIONS (3)
  - ASTHENIA [None]
  - DIZZINESS [None]
  - HEPATITIS [None]
